FAERS Safety Report 9017549 (Version 1)
Quarter: 2013Q1

REPORT INFORMATION
  Report Type: Spontaneous
  Country: US (occurrence: US)
  Receive Date: 20130117
  Receipt Date: 20130117
  Transmission Date: 20140127
  Serious: Yes (Other)
  Sender: FDA-Public Use
  Company Number: CHPA2013US000841

PATIENT
  Age: 80 Year
  Sex: Female

DRUGS (1)
  1. MYOFLEX [Suspect]
     Indication: FIBROMYALGIA
     Dosage: UNK, UNK
     Route: 061

REACTIONS (2)
  - Diabetes mellitus [Not Recovered/Not Resolved]
  - Off label use [Unknown]
